FAERS Safety Report 19565217 (Version 2)
Quarter: 2021Q3

REPORT INFORMATION
  Report Type: Spontaneous
  Country: CA (occurrence: CA)
  Receive Date: 20210715
  Receipt Date: 20210715
  Transmission Date: 20211014
  Serious: Yes (Other)
  Sender: FDA-Public Use
  Company Number: CA-GLAXOSMITHKLINE-CACH2021045501

PATIENT
  Age: 66 Year
  Sex: Male

DRUGS (1)
  1. VOLTAREN EMULGEL BACK MUSCLE PAIN (1.16%) [Suspect]
     Active Substance: DICLOFENAC DIETHYLAMINE
     Indication: PAIN
     Dosage: UNK

REACTIONS (3)
  - Medication error [Unknown]
  - Cerebral palsy [Unknown]
  - Joint injury [Unknown]
